FAERS Safety Report 7681961-4 (Version None)
Quarter: 2011Q3

REPORT INFORMATION
  Report Type: 
  Country: None (occurrence: None)
  Receive Date: 20110815
  Receipt Date: 20110804
  Transmission Date: 20111222
  Serious: Yes (Hospitalization)
  Sender: FDA-Public Use
  Company Number: US-BIOGENIDEC-2010BI039170

PATIENT
  Sex: Female

DRUGS (2)
  1. AVONEX [Suspect]
     Indication: MULTIPLE SCLEROSIS
     Route: 030
     Dates: start: 20071125, end: 20101201
  2. AVONEX [Suspect]
     Route: 030
     Dates: start: 20110708

REACTIONS (2)
  - GRAND MAL CONVULSION [None]
  - HEADACHE [None]
